FAERS Safety Report 8778690 (Version 1)
Quarter: 2012Q4

REPORT INFORMATION
  Report Type: 
  Country: US (occurrence: US)
  Receive Date: 20120912
  Receipt Date: 20120912
  Transmission Date: 20130627
  Serious: Yes (Other)
  Sender: FDA-Public Use
  Company Number: US-ROXANE LABORATORIES, INC.-2012-RO-01824RO

PATIENT
  Age: 87 Year
  Sex: Male

DRUGS (10)
  1. DONEPEZIL HYDROCHLORIDE [Suspect]
     Indication: MEMORY IMPAIRMENT
     Dosage: 10 mg
     Dates: start: 201106
  2. FLUTICASONE [Concomitant]
     Route: 045
  3. FUROSEMIDE [Concomitant]
     Route: 048
  4. SPIRONOLACTONE [Concomitant]
     Route: 048
  5. CARVEDILOL [Concomitant]
     Route: 048
  6. SIMVASTATIN [Concomitant]
     Route: 048
  7. OMEPRAZOLE [Concomitant]
     Route: 048
  8. LORATADINE [Concomitant]
     Route: 048
  9. VITAMIN B12 [Concomitant]
     Route: 048
  10. ASPIRIN [Concomitant]
     Route: 048

REACTIONS (1)
  - Memory impairment [Recovered/Resolved]
